FAERS Safety Report 10505640 (Version 4)
Quarter: 2016Q2

REPORT INFORMATION
  Report Type: Spontaneous
  Country: US (occurrence: US)
  Receive Date: 20141008
  Receipt Date: 20160628
  Transmission Date: 20160815
  Serious: Yes (Hospitalization, Other)
  Sender: FDA-Public Use
  Company Number: US-PFIZER INC-2014275036

PATIENT
  Age: 57 Year
  Sex: Male
  Weight: 85 kg

DRUGS (8)
  1. PERCOCET [Concomitant]
     Active Substance: ACETAMINOPHEN\OXYCODONE HYDROCHLORIDE
     Dosage: 5/325 2X/DAY
  2. DEPO-TESTOSTERONE [Suspect]
     Active Substance: TESTOSTERONE CYPIONATE
     Indication: HORMONE REPLACEMENT THERAPY
  3. ASA [Concomitant]
     Active Substance: ASPIRIN
     Dosage: 81 MG, 3X/DAY
  4. NTG SL [Concomitant]
     Dosage: UNK
  5. CIALIS [Concomitant]
     Active Substance: TADALAFIL
     Dosage: 20 MG, AS NEEDED
  6. DEPO-TESTOSTERONE [Suspect]
     Active Substance: TESTOSTERONE CYPIONATE
     Indication: BLOOD TESTOSTERONE DECREASED
     Dosage: UNK
     Dates: start: 201202, end: 201311
  7. METOPROLOL. [Concomitant]
     Active Substance: METOPROLOL
     Dosage: 25 2X/DAY
  8. LISINOPRIL. [Concomitant]
     Active Substance: LISINOPRIL
     Dosage: 5 MG, 3X/DAY

REACTIONS (7)
  - Hypotension [Unknown]
  - Sciatica [Unknown]
  - Myocardial infarction [Unknown]
  - Coronary artery disease [Unknown]
  - Hypertension [Unknown]
  - Anxiety [Unknown]
  - Back pain [Unknown]

NARRATIVE: CASE EVENT DATE: 201308
